FAERS Safety Report 7034774-0 (Version None)
Quarter: 2010Q4

REPORT INFORMATION
  Report Type: 
  Country: None (occurrence: None)
  Receive Date: 20101008
  Receipt Date: 20101003
  Transmission Date: 20110411
  Serious: Yes (Life-Threatening, Hospitalization, Other)
  Sender: FDA-Public Use
  Company Number: PHHO2010VE03572

PATIENT
  Sex: Female
  Weight: 34.7 kg

DRUGS (6)
  1. AFINITOR [Suspect]
     Indication: METASTATIC RENAL CELL CARCINOMA
     Dosage: 10 MG, QD
     Route: 048
     Dates: start: 20100220, end: 20100227
  2. ENALAPRIL MALEATE [Concomitant]
     Indication: HYPERTENSION
     Dosage: UNK
     Dates: start: 20070101, end: 20100228
  3. SULFAMETHOXAZOLE AND TRIMETHOPRIM [Concomitant]
     Dosage: UNK
     Dates: start: 20100214, end: 20100218
  4. ACE INHIBITOR NOS [Concomitant]
     Dosage: UNK
     Dates: start: 20100214, end: 20100218
  5. LANSOPRAZOLE [Concomitant]
     Indication: HIATUS HERNIA
  6. MEGACE [Concomitant]

REACTIONS (15)
  - ABDOMINAL PAIN [None]
  - DECREASED APPETITE [None]
  - DEHYDRATION [None]
  - DIARRHOEA [None]
  - HAEMODYNAMIC INSTABILITY [None]
  - HYPOTENSION [None]
  - LETHARGY [None]
  - METABOLIC ACIDOSIS [None]
  - NAUSEA [None]
  - RENAL FAILURE ACUTE [None]
  - SEPTIC SHOCK [None]
  - SOMNOLENCE [None]
  - URINARY TRACT INFECTION [None]
  - URINE OUTPUT DECREASED [None]
  - VOMITING [None]
